FAERS Safety Report 24581655 (Version 3)
Quarter: 2025Q1

REPORT INFORMATION
  Report Type: Spontaneous
  Country: CA (occurrence: CA)
  Receive Date: 20241105
  Receipt Date: 20250117
  Transmission Date: 20250409
  Serious: Yes (Other)
  Sender: PFIZER
  Company Number: CA-PFIZER INC-202300041155

PATIENT
  Age: 63 Year
  Sex: Male

DRUGS (5)
  1. CIBINQO [Interacting]
     Active Substance: ABROCITINIB
     Indication: Dermatitis atopic
     Dosage: 50 MG, 1X/DAY
     Route: 048
     Dates: start: 20230126, end: 202303
  2. CIBINQO [Interacting]
     Active Substance: ABROCITINIB
     Dosage: 100 MG, 1X/DAY
     Route: 048
     Dates: start: 202303, end: 2024
  3. CIBINQO [Interacting]
     Active Substance: ABROCITINIB
     Route: 048
     Dates: start: 2024, end: 202410
  4. CIBINQO [Interacting]
     Active Substance: ABROCITINIB
     Dosage: 100 MG, DAILY
     Route: 048
     Dates: start: 20241022
  5. CITALOPRAM [Interacting]
     Active Substance: CITALOPRAM
     Indication: Anxiety
     Dosage: 30 MG, DAILY

REACTIONS (9)
  - Malignant neoplasm of eye [Recovering/Resolving]
  - Metastases to neck [Unknown]
  - Therapeutic response shortened [Unknown]
  - Drug interaction [Unknown]
  - Insomnia [Not Recovered/Not Resolved]
  - Pruritus [Not Recovered/Not Resolved]
  - Blood triglycerides increased [Not Recovered/Not Resolved]
  - Off label use [Unknown]
  - Anxiety [Unknown]

NARRATIVE: CASE EVENT DATE: 20230101
